FAERS Safety Report 8243152 (Version 3)
Quarter: 2013Q1

REPORT INFORMATION
  Report Type: Spontaneous
  Country: US (occurrence: None)
  Receive Date: 20111103
  Receipt Date: 20121109
  Transmission Date: 20140127
  Serious: Yes (Hospitalization)
  Sender: FDA-Public Use
  Company Number: TPA2011A06950

PATIENT
  Age: 40 Year
  Sex: Male
  Weight: 160.12 kg

DRUGS (1)
  1. ACTOS [Suspect]
     Indication: TYPE 2 DIABETES MELLITUS
     Dosage: 30 MG, 1 IN 1 D, PER ORAL
     Route: 048
     Dates: start: 201103, end: 201110

REACTIONS (5)
  - Pollakiuria [None]
  - Abdominal pain lower [None]
  - Haematuria [None]
  - Dysuria [None]
  - Bladder cancer [None]
